FAERS Safety Report 23948066 (Version 1)
Quarter: 2024Q2

REPORT INFORMATION
  Report Type: Spontaneous
  Country: CA (occurrence: CA)
  Receive Date: 20240607
  Receipt Date: 20240607
  Transmission Date: 20240716
  Serious: Yes (Other)
  Sender: FDA-Public Use
  Company Number: CA-PFIZER INC-202400097881

PATIENT

DRUGS (2)
  1. INFLECTRA [Suspect]
     Active Substance: INFLIXIMAB-DYYB
     Indication: Rheumatoid arthritis
     Dosage: REINDUCTION WEEKS 0, 2 AND 6 THEN Q 8 WEEKS
     Route: 042
     Dates: start: 20221121
  2. PREGABALIN [Concomitant]
     Active Substance: PREGABALIN
     Dosage: 1 DF, DOSAGE NOT AVAILABLE
     Route: 065

REACTIONS (3)
  - Tooth fracture [Unknown]
  - Hidradenitis [Recovering/Resolving]
  - Cough [Not Recovered/Not Resolved]

NARRATIVE: CASE EVENT DATE: 20240201
